FAERS Safety Report 15601280 (Version 1)
Quarter: 2018Q4

REPORT INFORMATION
  Report Type: Spontaneous
  Country: US (occurrence: US)
  Receive Date: 20181108
  Receipt Date: 20181108
  Transmission Date: 20190205
  Serious: No
  Sender: FDA-Public Use
  Company Number: None

PATIENT
  Age: 18 Year
  Sex: Female
  Weight: 112.95 kg

DRUGS (2)
  1. CLONIDINE. [Suspect]
     Active Substance: CLONIDINE
     Dosage: AT BEDTIME
     Route: 048
     Dates: start: 20180804, end: 20180805
  2. BUSPAR 5MG PO BID [Concomitant]
     Dates: start: 20180801, end: 20180806

REACTIONS (1)
  - Dizziness [None]

NARRATIVE: CASE EVENT DATE: 20180806
